FAERS Safety Report 12451350 (Version 1)
Quarter: 2016Q2

REPORT INFORMATION
  Report Type: Spontaneous
  Country: JP (occurrence: JP)
  Receive Date: 20160609
  Receipt Date: 20160609
  Transmission Date: 20160815
  Serious: Yes (Hospitalization)
  Sender: FDA-Public Use
  Company Number: JP-AMGEN-JPNSP2016072529

PATIENT
  Age: 87 Year
  Sex: Female

DRUGS (5)
  1. ENBREL [Suspect]
     Active Substance: ETANERCEPT
     Indication: RHEUMATOID ARTHRITIS
     Dosage: 50 MG, BIWEEKLY
     Route: 058
     Dates: start: 201509
  2. AZULFIDINE [Concomitant]
     Active Substance: SULFASALAZINE
  3. TRAMCET [Concomitant]
     Active Substance: ACETAMINOPHEN\TRAMADOL
     Dosage: UNK
  4. PREDONINE [Concomitant]
     Active Substance: PREDNISOLONE\PREDNISOLONE ACETATE\PREDNISOLONE SODIUM SUCCINATE
  5. MOVER [Concomitant]

REACTIONS (3)
  - Lung neoplasm malignant [Unknown]
  - Inflammation [Unknown]
  - Oedema [Unknown]

NARRATIVE: CASE EVENT DATE: 201602
